FAERS Safety Report 11433265 (Version 3)
Quarter: 2015Q3

REPORT INFORMATION
  Report Type: Spontaneous
  Country: US (occurrence: None)
  Receive Date: 20150830
  Receipt Date: 20150916
  Transmission Date: 20151125
  Serious: Yes (Other)
  Sender: FDA-Public Use
  Company Number: US-MDT-ADR-2015-01655

PATIENT
  Age: 26 Year
  Sex: Male

DRUGS (2)
  1. BACLOFEN INTRATHECAL 2000 MCG/ML [Suspect]
     Active Substance: BACLOFEN
     Dosage: 630 MCG/DAY
  2. BACLOFEN ORAL [Suspect]
     Active Substance: BACLOFEN

REACTIONS (6)
  - Implant site pain [None]
  - Pocket erosion [None]
  - Implant site infection [None]
  - Wound [None]
  - Medical device site hypersensitivity [None]
  - Device extrusion [None]
